FAERS Safety Report 21680145 (Version 8)
Quarter: 2022Q4

REPORT INFORMATION
  Report Type: Spontaneous
  Country: US (occurrence: US)
  Receive Date: 20221205
  Receipt Date: 20221222
  Transmission Date: 20230113
  Serious: No
  Sender: FDA-Public Use
  Company Number: US-AMGEN-USASP2022207482

PATIENT
  Age: 50 Year
  Sex: Male
  Weight: 119.27 kg

DRUGS (10)
  1. NEULASTA [Suspect]
     Active Substance: PEGFILGRASTIM
     Indication: Agranulocytosis
     Dosage: 6 MILLIGRAM
     Route: 058
  2. NEULASTA [Suspect]
     Active Substance: PEGFILGRASTIM
     Indication: Off label use
     Dosage: 6 MILLIGRAM
     Route: 058
  3. CISPLATIN [Concomitant]
     Active Substance: CISPLATIN
     Indication: Bladder neoplasm
     Dosage: UNK
  4. GEMZAR [Concomitant]
     Active Substance: GEMCITABINE HYDROCHLORIDE
     Indication: Bladder neoplasm
     Dosage: 100 MILLIGRAM, UNITS 10
  5. DEXAMETHASONE SODIUM PHOSPHATE [Concomitant]
     Active Substance: DEXAMETHASONE SODIUM PHOSPHATE
     Dosage: 1 MILLIGRAM, UNITS 10.00
  6. ONDANSETRON [Concomitant]
     Active Substance: ONDANSETRON
     Dosage: 1 MILLIGRAM, UNITS 16.00
  7. DICLOFENAC SODIUM [Concomitant]
     Active Substance: DICLOFENAC SODIUM
     Dosage: 50 MILLIGRAM, BID, AS NEEDED
     Route: 048
  8. PROCHLORPERAZINE MALEATE [Concomitant]
     Active Substance: PROCHLORPERAZINE MALEATE
     Dosage: 10 MILLIGRAM, TID, 1 TABLET AS NEEDED
     Route: 048
  9. TAMSULOSIN HYDROCHLORIDE [Concomitant]
     Active Substance: TAMSULOSIN HYDROCHLORIDE
     Dosage: 0.4 MILLIGRAM, QD, 1 CAPSULE ONCE A DAY
     Route: 048
  10. TOLTERODINE TARTRATE [Concomitant]
     Active Substance: TOLTERODINE TARTRATE
     Dosage: 2 MILLIGRAM, BID, 1 TAABLET TWICE A DAY
     Route: 048

REACTIONS (2)
  - Device malfunction [Unknown]
  - Off label use [Unknown]
